FAERS Safety Report 9696961 (Version 5)
Quarter: 2014Q1

REPORT INFORMATION
  Report Type: Spontaneous
  Country: US (occurrence: US)
  Receive Date: 20131119
  Receipt Date: 20140225
  Transmission Date: 20141002
  Serious: No
  Sender: FDA-Public Use
  Company Number: US-009507513-1311USA006429

PATIENT
  Sex: Female

DRUGS (5)
  1. BOCEPREVIR [Suspect]
     Indication: CHRONIC HEPATITIS C
     Dosage: UNK
     Route: 065
     Dates: start: 20130618
  2. PEGASYS [Suspect]
     Indication: CHRONIC HEPATITIS C
     Dosage: 180 MICROGRAM, QW
     Route: 058
     Dates: start: 20130618
  3. RIBAPAK [Suspect]
     Indication: CHRONIC HEPATITIS C
     Dosage: 1000 MG, QD
     Route: 058
     Dates: start: 20130618
  4. RIBAPAK [Suspect]
     Dosage: 200 MG, QD
     Route: 058
  5. IBUPROFEN [Concomitant]

REACTIONS (10)
  - Stress [Unknown]
  - Weight increased [Unknown]
  - Arthritis [Unknown]
  - Emotional disorder [Unknown]
  - Pruritus [Unknown]
  - Pain [Unknown]
  - Asthenia [Unknown]
  - Malaise [Unknown]
  - Nervousness [Unknown]
  - Drug dose omission [Unknown]
